FAERS Safety Report 5830480-6 (Version None)
Quarter: 2008Q3

REPORT INFORMATION
  Report Type: 
  Country: None (occurrence: None)
  Receive Date: 20080801
  Receipt Date: 20070606
  Transmission Date: 20090109
  Serious: No
  Sender: FDA-Public Use
  Company Number: US-BRISTOL-MYERS SQUIBB COMPANY-13805445

PATIENT
  Age: 72 Year
  Sex: Female
  Weight: 72 kg

DRUGS (3)
  1. COUMADIN [Suspect]
     Indication: ATRIAL FIBRILLATION
     Dosage: 5 MG DAILY 2 DAYS/WEEK + 7.5 MG DAILY 5 DAYS/WEEK
     Dates: start: 20070501
  2. PAXIL [Concomitant]
  3. ENALAPRIL MALEATE [Concomitant]

REACTIONS (3)
  - ABDOMINAL PAIN [None]
  - ASTHENIA [None]
  - DIARRHOEA [None]
